FAERS Safety Report 6992694-1 (Version None)
Quarter: 2010Q3

REPORT INFORMATION
  Report Type: 
  Country: None (occurrence: None)
  Receive Date: 20100917
  Receipt Date: 20100914
  Transmission Date: 20110219
  Serious: Yes (Disabling, Other)
  Sender: FDA-Public Use
  Company Number: GB-MERCK-1009GBR00051

PATIENT
  Age: 84 Year
  Sex: Male
  Weight: 94 kg

DRUGS (6)
  1. ZOCOR [Suspect]
     Indication: HYPERCHOLESTEROLAEMIA
     Route: 048
     Dates: start: 20020101
  2. ALLOPURINOL [Concomitant]
     Indication: GOUT
     Route: 048
     Dates: start: 19900101
  3. ASPIRIN [Concomitant]
     Indication: PROPHYLAXIS
     Route: 048
     Dates: start: 20000101
  4. PERINDOPRIL [Concomitant]
     Indication: HYPERTENSION
     Route: 048
  5. TAMSULOSIN HYDROCHLORIDE [Concomitant]
     Indication: PROSTATOMEGALY
     Route: 048
     Dates: start: 19900101
  6. LATANOPROST [Concomitant]
     Indication: RETINAL VASCULAR THROMBOSIS
     Route: 047
     Dates: start: 20060101

REACTIONS (1)
  - CATARACT [None]
